FAERS Safety Report 21832132 (Version 1)
Quarter: 2023Q1

REPORT INFORMATION
  Report Type: Spontaneous
  Country: CH (occurrence: CH)
  Receive Date: 20230106
  Receipt Date: 20230106
  Transmission Date: 20230417
  Serious: Yes (Hospitalization)
  Sender: FDA-Public Use
  Company Number: CH-SM-2022-22645

PATIENT
  Age: 78 Year
  Sex: Male
  Weight: 96 kg

DRUGS (20)
  1. ROSUVASTATIN CALCIUM [Suspect]
     Active Substance: ROSUVASTATIN CALCIUM
     Indication: Dyslipidaemia
     Dosage: 20 MILLIGRAM DAILY; 20 MG, OD
     Route: 048
     Dates: end: 20220512
  2. COLCHICINE [Suspect]
     Active Substance: COLCHICINE
     Indication: Chondrocalcinosis
     Dosage: 1 MG
     Route: 048
     Dates: end: 20220512
  3. COLCHICINE [Suspect]
     Active Substance: COLCHICINE
     Dosage: RESTART IN PROGRESS (EXACT DATE NOT KNOWN, DOCUMENTED FOR SURE FROM JULY 2022), UNIT DOSE : 1 DF
     Route: 048
     Dates: start: 202207
  4. ALLOPURINOL [Suspect]
     Active Substance: ALLOPURINOL
     Indication: Gout
     Dosage: 100 MILLIGRAM DAILY; 100 MG / DAY ORAL INTAKE, OD
     Route: 048
     Dates: end: 20220512
  5. PREDNISOLONE [Concomitant]
     Active Substance: PREDNISOLONE
     Indication: Product used for unknown indication
     Dosage: 1.25 MILLIGRAM DAILY; SPIRICORT FILM-COATED TABLETS 5 MG (PREDNISOLONE); 0.25 - 0 - 0 - 0; INCREASED
     Route: 048
     Dates: end: 202205
  6. PREDNISOLONE [Concomitant]
     Active Substance: PREDNISOLONE
     Dosage: 5 MILLIGRAM DAILY; 5 MG OD
     Route: 048
     Dates: start: 202205
  7. FEBUXOSTAT [Concomitant]
     Active Substance: FEBUXOSTAT
     Indication: Product used for unknown indication
     Dosage: 80 MILLIGRAM DAILY; 1 - 0 - 0 - 0, 80 MG
     Route: 048
  8. PANTOPRAZOLE SODIUM [Concomitant]
     Active Substance: PANTOPRAZOLE SODIUM
     Indication: Product used for unknown indication
     Dosage: 40 MILLIGRAM DAILY; 1 - 0 - 0 - 0,
     Route: 048
  9. Amlodipine sandoz eco [Concomitant]
     Indication: Product used for unknown indication
     Dosage: 10 MILLIGRAM DAILY; 10 MG, 1 - 0 - 0 - 0
     Route: 048
  10. METOPROLOL SUCCINATE [Concomitant]
     Active Substance: METOPROLOL SUCCINATE
     Indication: Product used for unknown indication
     Dosage: 100 MILLIGRAM DAILY; METOPROLOL MEPHA DEPOTABS 100 MG (METOPROLOL); 1 - 0 - 0 - 0
     Route: 048
  11. CANDESARTAN CILEXETIL\HYDROCHLOROTHIAZIDE [Concomitant]
     Active Substance: CANDESARTAN CILEXETIL\HYDROCHLOROTHIAZIDE
     Indication: Product used for unknown indication
     Dosage: 1 DOSAGE FORMS DAILY; CANDESARTAN PLUS TAKEDA TABLETS 32/12.5 MG (CANDESARTAN, HYDROCHLOROTHIAZIDE);
     Route: 048
  12. PLAVIX [Concomitant]
     Active Substance: CLOPIDOGREL BISULFATE
     Indication: Product used for unknown indication
     Dosage: 75 MILLIGRAM DAILY; PLAVIX TABLETS 75 MG (CLOPIDOGREL); 1 - 0 - 0 - 0
     Route: 048
  13. LINAGLIPTIN [Concomitant]
     Active Substance: LINAGLIPTIN
     Indication: Product used for unknown indication
     Dosage: 5 MILLIGRAM DAILY; TRAJENTA FILM-COATED TABLETS 5 MG (LINAGLIPTIN); 1 - 0 - 0 - 0
     Route: 048
  14. JARDIANCE [Concomitant]
     Active Substance: EMPAGLIFLOZIN
     Indication: Product used for unknown indication
     Dosage: 10 MILLIGRAM DAILY; 10 MG, JARDIANCE FILM-COATED TABLETS 10 MG (EMPAGLIFLOZIN); 1 - 0 - 0 - 0
     Route: 048
  15. LANTUS [Concomitant]
     Active Substance: INSULIN GLARGINE
     Indication: Product used for unknown indication
     Dosage: ACCORDING TO BLOOD SUGAR ; AS NECESSARY, LANTUS SOLUTION FOR INJECTION 100 U/1 ML SOLOSTAR PRE-FILLE
     Route: 058
  16. CHOLECALCIFEROL [Concomitant]
     Active Substance: CHOLECALCIFEROL
     Indication: Product used for unknown indication
     Dosage: 8 GTT DAILY; VI-DE 3 DROPS (100 U = 1 DROP) 4,500 U/1 ML (CHOLECALCIFEROL (VITAMIN D3)); 8 - 0 - 0 -
     Route: 048
  17. TORSEMIDE [Concomitant]
     Active Substance: TORSEMIDE
     Indication: Product used for unknown indication
     Dosage: 5 MILLIGRAM DAILY; TOREM TABLETS 5 MG (TORASEMIDE); 1 - 0 - 0 - 0; DURING HOSPITALISATION REDUCED TO
     Route: 048
     Dates: end: 202205
  18. TORSEMIDE [Concomitant]
     Active Substance: TORSEMIDE
     Route: 048
     Dates: start: 202205
  19. FOLIC ACID [Concomitant]
     Active Substance: FOLIC ACID
     Indication: Product used for unknown indication
     Dosage: 5 MILLIGRAM DAILY; ACIDUM FOLICUM STREULI TABLETS 5 MG (FOLIC ACID); 1 - 0 - 0 -
     Route: 048
  20. NOVALGIN (METAMIZOLE SODIUM) [Concomitant]
     Active Substance: METAMIZOLE SODIUM
     Indication: Product used for unknown indication
     Dosage: 3000 MILLIGRAM DAILY; NOVALGIN FILM-COATED TABLETS 500 MG (METAMIZOLE); 2 - 0 - 2 - 2,
     Route: 048

REACTIONS (4)
  - Hypovolaemic shock [Recovered/Resolved]
  - Poisoning [Recovered/Resolved]
  - Acute kidney injury [Recovered/Resolved]
  - Rhabdomyolysis [Recovered/Resolved]

NARRATIVE: CASE EVENT DATE: 20220512
